FAERS Safety Report 13329292 (Version 1)
Quarter: 2017Q1

REPORT INFORMATION
  Report Type: Report from Study
  Country: NL (occurrence: NL)
  Receive Date: 20170313
  Receipt Date: 20170313
  Transmission Date: 20170428
  Serious: Yes (Hospitalization, Other)
  Sender: FDA-Public Use
  Company Number: NL-AMGEN-NLDSL2017035759

PATIENT
  Age: 74 Year
  Sex: Female

DRUGS (1)
  1. ARANESP [Suspect]
     Active Substance: DARBEPOETIN ALFA
     Indication: MYELODYSPLASTIC SYNDROME
     Dosage: 0.3 ML (500 MCG/ML), QWK
     Route: 058

REACTIONS (5)
  - Hospitalisation [Unknown]
  - Off label use [Unknown]
  - Malaise [Unknown]
  - Constipation [Unknown]
  - Pyrexia [Unknown]

NARRATIVE: CASE EVENT DATE: 201703
